FAERS Safety Report 24819381 (Version 2)
Quarter: 2025Q3

REPORT INFORMATION
  Report Type: Spontaneous
  Country: JP (occurrence: JP)
  Receive Date: 20250108
  Receipt Date: 20250809
  Transmission Date: 20251021
  Serious: Yes (Death)
  Sender: ALEXION PHARMACEUTICALS
  Company Number: JP-ASTRAZENECA-240129501_064320_P_1

PATIENT
  Age: 95 Year
  Sex: Male

DRUGS (6)
  1. ANDEXXA [Suspect]
     Active Substance: ANDEXANET ALFA
     Indication: Extradural haematoma
     Dates: start: 20240523, end: 20240523
  2. ANDEXXA [Suspect]
     Active Substance: ANDEXANET ALFA
     Indication: Haematoma
  3. ANDEXXA [Suspect]
     Active Substance: ANDEXANET ALFA
     Indication: Haemothorax
  4. XARELTO [Concomitant]
     Active Substance: RIVAROXABAN
     Indication: Atrial fibrillation
  5. Adona [Concomitant]
     Route: 065
  6. TRANSAMIN [Concomitant]
     Active Substance: TRANEXAMIC ACID
     Route: 065

REACTIONS (1)
  - Asthenia [Fatal]
